FAERS Safety Report 14143199 (Version 3)
Quarter: 2017Q4

REPORT INFORMATION
  Report Type: Report from Study
  Country: US (occurrence: US)
  Receive Date: 20171030
  Receipt Date: 20171127
  Transmission Date: 20180321
  Serious: Yes (Death, Hospitalization)
  Sender: FDA-Public Use
  Company Number: US-ACTELION-A-US2016-144111

PATIENT
  Age: 64 Year
  Sex: Male
  Weight: 103.4 kg

DRUGS (8)
  1. COMBIVENT [Concomitant]
     Active Substance: ALBUTEROL SULFATE\IPRATROPIUM BROMIDE
  2. OPSUMIT [Suspect]
     Active Substance: MACITENTAN
     Indication: PULMONARY ARTERIAL HYPERTENSION
     Dosage: 10 MG, QD
     Route: 048
     Dates: start: 20160601
  3. ADCIRCA [Concomitant]
     Active Substance: TADALAFIL
  4. DIGOXIN. [Concomitant]
     Active Substance: DIGOXIN
  5. CARDIZEM [Concomitant]
     Active Substance: DILTIAZEM HYDROCHLORIDE
  6. REMODULIN [Concomitant]
     Active Substance: TREPROSTINIL
  7. COUMADIN [Concomitant]
     Active Substance: WARFARIN SODIUM
  8. FLOVENT HFA [Concomitant]
     Active Substance: FLUTICASONE PROPIONATE

REACTIONS (8)
  - Pleural effusion [Unknown]
  - Death [Fatal]
  - Dyspnoea [Unknown]
  - Right ventricular failure [Unknown]
  - Aspiration pleural cavity [Unknown]
  - Fluid retention [Unknown]
  - Hypotension [Not Recovered/Not Resolved]
  - Swelling [Unknown]

NARRATIVE: CASE EVENT DATE: 20160922
